FAERS Safety Report 10337846 (Version 1)
Quarter: 2014Q3

REPORT INFORMATION
  Report Type: Report from Study
  Country: US (occurrence: US)
  Receive Date: 20140724
  Receipt Date: 20140724
  Transmission Date: 20150326
  Serious: Yes (Hospitalization, Other)
  Sender: FDA-Public Use
  Company Number: US-ROCHE-1438981

PATIENT
  Sex: Female
  Weight: 50.39 kg

DRUGS (9)
  1. OMEPRAZOLE. [Concomitant]
     Active Substance: OMEPRAZOLE
     Dosage: DELAYED RELEASE
     Route: 065
  2. LIOTHYRONINE [Concomitant]
     Active Substance: LIOTHYRONINE
     Route: 065
  3. CLONAZEPAM. [Suspect]
     Active Substance: CLONAZEPAM
     Indication: PRODUCT USED FOR UNKNOWN INDICATION
     Route: 048
  4. BIOTIN [Concomitant]
     Active Substance: BIOTIN
     Route: 065
  5. SAIZEN [Concomitant]
     Active Substance: SOMATROPIN
     Dosage: AT BEDTIME, 8.8 MG/1.5 ML , SUB Q CARTIDGE
     Route: 065
  6. ALDACTONE (BRAZIL) [Concomitant]
     Route: 065
  7. TOPAMAX [Concomitant]
     Active Substance: TOPIRAMATE
     Route: 065
  8. CELEXA [Concomitant]
     Active Substance: CITALOPRAM HYDROBROMIDE
     Route: 065
  9. LEVOTHYROXINE [Concomitant]
     Active Substance: LEVOTHYROXINE
     Indication: HYPOTHYROIDISM
     Dosage: IN MORNING
     Route: 065

REACTIONS (4)
  - Foot fracture [Unknown]
  - Osteoporosis [Unknown]
  - Pain [Unknown]
  - Hyperlipidaemia [Unknown]
